FAERS Safety Report 9101354 (Version 1)
Quarter: 2013Q1

REPORT INFORMATION
  Report Type: Report from Study
  Country: US (occurrence: US)
  Receive Date: 20130218
  Receipt Date: 20130218
  Transmission Date: 20140127
  Serious: No
  Sender: FDA-Public Use
  Company Number: US-ABBOTT-12P-163-0990610-00

PATIENT
  Sex: Male
  Weight: 172.52 kg

DRUGS (13)
  1. SIMCOR 500/20 [Suspect]
     Indication: PRODUCT USED FOR UNKNOWN INDICATION
     Dosage: 500/20 MG AT BEDTIME
     Dates: start: 201110
  2. UROLIC [Concomitant]
     Indication: PRODUCT USED FOR UNKNOWN INDICATION
  3. ASA [Concomitant]
     Indication: PRODUCT USED FOR UNKNOWN INDICATION
     Dosage: IN THE MORNING
  4. BENADRYL [Concomitant]
     Indication: PRODUCT USED FOR UNKNOWN INDICATION
  5. B 12 [Concomitant]
     Indication: PRODUCT USED FOR UNKNOWN INDICATION
  6. MICARDIS [Concomitant]
     Indication: PRODUCT USED FOR UNKNOWN INDICATION
  7. GENSIN OTC [Concomitant]
     Indication: PRODUCT USED FOR UNKNOWN INDICATION
  8. HERBAL MEDS OTC [Concomitant]
     Indication: PRODUCT USED FOR UNKNOWN INDICATION
  9. DANNLLION OTC [Concomitant]
     Indication: PRODUCT USED FOR UNKNOWN INDICATION
  10. SAWTALLMINTON [Concomitant]
     Indication: PRODUCT USED FOR UNKNOWN INDICATION
  11. SEAWEED [Concomitant]
     Indication: PRODUCT USED FOR UNKNOWN INDICATION
  12. FOCUS FACTOR [Concomitant]
     Indication: PRODUCT USED FOR UNKNOWN INDICATION
  13. GREEN TEA [Concomitant]
     Indication: PRODUCT USED FOR UNKNOWN INDICATION

REACTIONS (1)
  - Flushing [Not Recovered/Not Resolved]
